FAERS Safety Report 9209580 (Version 1)
Quarter: 2013Q2

REPORT INFORMATION
  Report Type: Spontaneous
  Country: US (occurrence: None)
  Receive Date: 20130403
  Receipt Date: 20130403
  Transmission Date: 20140414
  Serious: No
  Sender: FDA-Public Use
  Company Number: None

PATIENT
  Sex: Male
  Weight: 48.99 kg

DRUGS (1)
  1. CLINDAMYCIN [Suspect]
     Indication: ORAL DISORDER
     Dates: start: 20130107

REACTIONS (1)
  - Clostridium difficile colitis [None]
